FAERS Safety Report 7682800-8 (Version None)
Quarter: 2011Q3

REPORT INFORMATION
  Report Type: 
  Country: None (occurrence: None)
  Receive Date: 20110815
  Receipt Date: 20110809
  Transmission Date: 20111222
  Serious: Yes (Other)
  Sender: FDA-Public Use
  Company Number: CA-ROCHE-746042

PATIENT
  Sex: Male
  Weight: 89.8 kg

DRUGS (13)
  1. CALTRATE PLUS [Concomitant]
  2. TAMSULOSIN HCL [Concomitant]
  3. METHOTREXATE [Concomitant]
  4. RISEDRONATE SODIUM [Concomitant]
     Dosage: DRUG NAME:TEVA-RISEDORNETE
  5. VITAMIN A [Concomitant]
  6. TOCILIZUMAB [Suspect]
     Indication: RHEUMATOID ARTHRITIS
     Route: 042
     Dates: start: 20100707, end: 20110708
  7. LEFLUNOMIDE [Concomitant]
  8. CELEBREX [Concomitant]
  9. VIT D [Concomitant]
  10. FOLIC ACID [Concomitant]
  11. PANTOPRAZOLE [Concomitant]
  12. TEMAZEPAM [Concomitant]
  13. B COMPLEX 100 [Concomitant]

REACTIONS (2)
  - DRUG INEFFECTIVE [None]
  - MYOCARDIAL INFARCTION [None]
